FAERS Safety Report 7817183-3 (Version None)
Quarter: 2011Q4

REPORT INFORMATION
  Report Type: 
  Country: None (occurrence: None)
  Receive Date: 20111017
  Receipt Date: 20111017
  Transmission Date: 20120403
  Serious: Yes (Other)
  Sender: FDA-Public Use
  Company Number: None

PATIENT
  Age: 41 Year
  Sex: Female

DRUGS (9)
  1. NUVIGIL [Concomitant]
     Route: 048
  2. MAXALT [Concomitant]
     Route: 048
  3. FLUTICASONE PROPIONATE [Concomitant]
     Route: 045
  4. VALACYCLOVIR [Concomitant]
     Route: 048
  5. CLONAZEPAM [Concomitant]
     Indication: ANXIETY
     Dosage: 1HS, 30
     Route: 048
     Dates: start: 20110920, end: 20111016
  6. AMPHETAMINE SULFATE [Concomitant]
     Route: 048
  7. CYMBALTA [Concomitant]
     Route: 048
  8. DEXAMETHASONE [Concomitant]
     Route: 048
  9. TRAZODONE HYDROCHLORIDE [Suspect]
     Indication: SOMNOLENCE
     Dosage: 1HS, 30
     Route: 048
     Dates: start: 20111010, end: 20111016

REACTIONS (1)
  - ALOPECIA [None]
